FAERS Safety Report 6126217-6 (Version None)
Quarter: 2009Q1

REPORT INFORMATION
  Report Type: 
  Country: None (occurrence: None)
  Receive Date: 20090320
  Receipt Date: 20090313
  Transmission Date: 20090719
  Serious: Yes (Hospitalization)
  Sender: FDA-Public Use
  Company Number: B0565919A

PATIENT
  Sex: Male

DRUGS (1)
  1. ZOVIRAX [Suspect]

REACTIONS (4)
  - ANOREXIA [None]
  - CONFUSIONAL STATE [None]
  - NAUSEA [None]
  - VOMITING [None]
